FAERS Safety Report 9168374 (Version 1)
Quarter: 2013Q1

REPORT INFORMATION
  Report Type: Spontaneous
  Country: US (occurrence: US)
  Receive Date: 20130318
  Receipt Date: 20130318
  Transmission Date: 20140127
  Serious: Yes (Other)
  Sender: FDA-Public Use
  Company Number: US-B.I. PHARMACEUTICALS,INC./RIDGEFIELD-2013-BI-06790BP

PATIENT
  Age: 66 None
  Sex: Male
  Weight: 67 kg

DRUGS (1)
  1. SPIRIVA [Suspect]
     Indication: CHRONIC OBSTRUCTIVE PULMONARY DISEASE
     Dosage: 18 MCG
     Route: 048
     Dates: start: 2008

REACTIONS (3)
  - Cerebrovascular accident [Unknown]
  - Benign prostatic hyperplasia [Not Recovered/Not Resolved]
  - Discomfort [Not Recovered/Not Resolved]
